FAERS Safety Report 6153512-7 (Version None)
Quarter: 2009Q2

REPORT INFORMATION
  Report Type: 
  Country: None (occurrence: None)
  Receive Date: 20090413
  Receipt Date: 20090406
  Transmission Date: 20091009
  Serious: Yes (Other)
  Sender: FDA-Public Use
  Company Number: PHHY2009FR12415

PATIENT

DRUGS (1)
  1. EXJADE [Suspect]
     Indication: HEREDITARY HAEMOCHROMATOSIS
     Route: 048

REACTIONS (2)
  - DRUG PRESCRIBING ERROR [None]
  - PROTEINURIA [None]
